FAERS Safety Report 4980242-7 (Version None)
Quarter: 2006Q2

REPORT INFORMATION
  Report Type: 
  Country: None (occurrence: None)
  Receive Date: 20060424
  Receipt Date: 20060112
  Transmission Date: 20061013
  Serious: Yes (Hospitalization)
  Sender: FDA-Public Use
  Company Number: PHBS2006SE00832

PATIENT
  Age: 12 Year
  Sex: Male

DRUGS (7)
  1. LEVAXIN [Concomitant]
     Dosage: 0.05 MG, QD
  2. SANDIMMUNE [Concomitant]
     Dosage: 50 MG/DAY
  3. PREDNISOLONE [Concomitant]
     Dosage: 10 MG EVERY SECOND DAY
  4. GEAVIR [Concomitant]
     Dosage: 400 MG/DAY
  5. EUSAPRIM FORTE [Concomitant]
     Dosage: 6 MG TRIM./30 MG SULF/KG 2 DAYS PER WK
  6. GLEEVEC [Suspect]
     Indication: ACUTE LYMPHOCYTIC LEUKAEMIA RECURRENT
     Dosage: 400 MG/DAY
     Route: 065
     Dates: start: 20050101, end: 20051101
  7. GLEEVEC [Suspect]
     Dosage: 600 MG/DAY
     Route: 065
     Dates: start: 20051101

REACTIONS (3)
  - BLEEDING TIME PROLONGED [None]
  - INJURY [None]
  - SUBDURAL HAEMATOMA [None]
